FAERS Safety Report 19084750 (Version 2)
Quarter: 2021Q3

REPORT INFORMATION
  Report Type: Report from Study
  Country: CO (occurrence: CO)
  Receive Date: 20210401
  Receipt Date: 20210716
  Transmission Date: 20211014
  Serious: Yes (Other)
  Sender: FDA-Public Use
  Company Number: NVSC2021CO049810

PATIENT
  Age: 37 Year
  Sex: Female
  Weight: 56 kg

DRUGS (6)
  1. FEMARA [Suspect]
     Active Substance: LETROZOLE
     Indication: BREAST CANCER METASTATIC
     Dosage: 2.5 MG, QD
     Route: 048
     Dates: start: 202009
  2. ZOLEDRONIC ACID [Suspect]
     Active Substance: ZOLEDRONIC ACID
     Indication: BONE DISORDER
     Dosage: EVERY 28 DAYS
     Route: 058
  3. KISQALI [Suspect]
     Active Substance: RIBOCICLIB
     Dosage: 200 MG, QD
     Route: 048
  4. KISQALI [Suspect]
     Active Substance: RIBOCICLIB
     Dosage: 400 MG, QD
     Route: 048
  5. KISQALI [Suspect]
     Active Substance: RIBOCICLIB
     Indication: BREAST CANCER METASTATIC
     Dosage: 600 MG, QD
     Route: 048
     Dates: start: 202009
  6. GOSERELIN [Concomitant]
     Active Substance: GOSERELIN
     Indication: HORMONE LEVEL ABNORMAL
     Dosage: EVERY 28 DAYS
     Route: 058

REACTIONS (15)
  - Red blood cell abnormality [Unknown]
  - Haemoglobin abnormal [Unknown]
  - Neutrophil count decreased [Unknown]
  - Laboratory test abnormal [Unknown]
  - White blood cell count decreased [Unknown]
  - Decreased immune responsiveness [Unknown]
  - Chest discomfort [Unknown]
  - Lymphocyte count decreased [Unknown]
  - Off label use [Unknown]
  - Haematocrit decreased [Unknown]
  - Eosinophil count abnormal [Unknown]
  - Red blood cell count decreased [Unknown]
  - Platelet count decreased [Unknown]
  - Mean cell haemoglobin decreased [Unknown]
  - Chest pain [Unknown]

NARRATIVE: CASE EVENT DATE: 202101
